FAERS Safety Report 13631752 (Version 1)
Quarter: 2017Q2

REPORT INFORMATION
  Report Type: Spontaneous
  Country: US (occurrence: US)
  Receive Date: 20170531
  Receipt Date: 20170531
  Transmission Date: 20170830
  Serious: No
  Sender: FDA-Public Use
  Company Number: US-ASTELLAS-1411200

PATIENT
  Sex: Male
  Weight: 76.73 kg

DRUGS (1)
  1. TARCEVA [Suspect]
     Active Substance: ERLOTINIB HYDROCHLORIDE
     Indication: LUNG NEOPLASM MALIGNANT
     Route: 048
     Dates: start: 20140521

REACTIONS (3)
  - Eyelid margin crusting [Unknown]
  - Eye irritation [Unknown]
  - Lacrimation increased [Unknown]
